FAERS Safety Report 14410236 (Version 7)
Quarter: 2018Q3

REPORT INFORMATION
  Report Type: Spontaneous
  Country: JP (occurrence: JP)
  Receive Date: 20180119
  Receipt Date: 20180921
  Transmission Date: 20181010
  Serious: Yes (Hospitalization)
  Sender: FDA-Public Use
  Company Number: JP-ASTELLAS-2017JP022622

PATIENT
  Sex: Male

DRUGS (5)
  1. VESICARE [Suspect]
     Active Substance: SOLIFENACIN SUCCINATE
     Dosage: 5 MG, ONCE DAILY,DAYTIME
     Route: 048
  2. VESICARE [Suspect]
     Active Substance: SOLIFENACIN SUCCINATE
     Indication: PRODUCT USED FOR UNKNOWN INDICATION
     Dosage: 5 MG, TWICE DAILY, MORNING AND EVENING
     Route: 048
  3. VESICARE [Suspect]
     Active Substance: SOLIFENACIN SUCCINATE
     Route: 048
  4. VESICARE [Suspect]
     Active Substance: SOLIFENACIN SUCCINATE
     Route: 048
  5. VESICARE [Suspect]
     Active Substance: SOLIFENACIN SUCCINATE
     Route: 048
     Dates: start: 201707, end: 201708

REACTIONS (12)
  - Nausea [Unknown]
  - Blood pressure increased [Unknown]
  - Off label use [Unknown]
  - Dizziness postural [Unknown]
  - Blood urine present [Unknown]
  - Headache [Unknown]
  - Hyperventilation [Unknown]
  - Prostatitis [Unknown]
  - Vomiting [Unknown]
  - Urethritis [Unknown]
  - Thirst [Unknown]
  - Vomiting [Unknown]

NARRATIVE: CASE EVENT DATE: 20180111
